FAERS Safety Report 9773026 (Version 1)
Quarter: 2013Q4

REPORT INFORMATION
  Report Type: Spontaneous
  Country: PT (occurrence: PT)
  Receive Date: 20131219
  Receipt Date: 20131219
  Transmission Date: 20140711
  Serious: Yes (Hospitalization)
  Sender: FDA-Public Use
  Company Number: PT-ROXANE LABORATORIES, INC.-2013-RO-01969RO

PATIENT
  Age: 64 Year
  Sex: Female

DRUGS (2)
  1. METHOTREXATE [Suspect]
     Indication: RHEUMATOID ARTHRITIS
  2. METHOTREXATE [Suspect]
     Route: 030

REACTIONS (3)
  - Pulmonary toxicity [Recovered/Resolved]
  - Respiratory failure [Recovered/Resolved]
  - Pneumonitis [Recovered/Resolved]
